FAERS Safety Report 9225192 (Version 7)
Quarter: 2013Q3

REPORT INFORMATION
  Report Type: Report from Study
  Country: CA (occurrence: CA)
  Receive Date: 20130411
  Receipt Date: 20130827
  Transmission Date: 20140515
  Serious: Yes (Hospitalization, Other)
  Sender: FDA-Public Use
  Company Number: CA-ROCHE-1113370

PATIENT
  Age: 81 Year
  Sex: Female
  Weight: 68 kg

DRUGS (15)
  1. ACTEMRA [Suspect]
     Indication: RHEUMATOID ARTHRITIS
     Route: 042
     Dates: start: 20101129
  2. ACTEMRA [Suspect]
     Route: 042
     Dates: start: 20111011
  3. ACTEMRA [Suspect]
     Route: 042
     Dates: start: 20120109
  4. ACTEMRA [Suspect]
     Route: 042
     Dates: start: 20120731
  5. ACTEMRA [Suspect]
     Route: 042
     Dates: start: 2006
  6. METHOTREXATE [Concomitant]
     Route: 058
  7. AGGRENOX [Concomitant]
  8. ATORVASTATIN [Concomitant]
  9. EFFEXOR [Concomitant]
  10. TYLENOL #1 (CANADA) [Concomitant]
  11. SYNTHROID [Concomitant]
  12. MISOPROSTOL [Concomitant]
  13. DOMPERIDONE [Concomitant]
  14. EURO-FOLIC [Concomitant]
  15. ATACAND [Concomitant]

REACTIONS (5)
  - Anaemia [Unknown]
  - Depression [Not Recovered/Not Resolved]
  - Contusion [Not Recovered/Not Resolved]
  - Asthenia [Not Recovered/Not Resolved]
  - Arthralgia [Unknown]
